FAERS Safety Report 5554003-4 (Version None)
Quarter: 2007Q4

REPORT INFORMATION
  Report Type: 
  Country: None (occurrence: None)
  Receive Date: 20071212
  Receipt Date: 20071212
  Transmission Date: 20080405
  Serious: Yes (Hospitalization)
  Sender: FDA-Public Use
  Company Number: None

PATIENT
  Age: 62 Year
  Sex: Male
  Weight: 126 kg

DRUGS (11)
  1. EXENATIDE [Suspect]
     Indication: TYPE 2 DIABETES MELLITUS
     Dosage: 10 MCG BID SQ
     Route: 058
     Dates: start: 20050614, end: 20070402
  2. METFORMIN HCL [Concomitant]
  3. ROSIGLITAZONE [Concomitant]
  4. LANTUS [Concomitant]
  5. NOVOLOG [Concomitant]
  6. SIMVASTATIN [Suspect]
  7. DULOXETINE [Concomitant]
  8. FUROSEMIDE [Concomitant]
  9. ACCURETIC [Concomitant]
  10. ASPIRIN [Concomitant]
  11. FENOFIBRATE/PLACEBO [Concomitant]

REACTIONS (3)
  - CHEST PAIN [None]
  - GASTRITIS EROSIVE [None]
  - PANCREATITIS ACUTE [None]
